FAERS Safety Report 5029679-0 (Version None)
Quarter: 2006Q2

REPORT INFORMATION
  Report Type: 
  Country: None (occurrence: None)
  Receive Date: 20060614
  Receipt Date: 20060606
  Transmission Date: 20061013
  Serious: Yes (Hospitalization)
  Sender: FDA-Public Use
  Company Number: 2006072435

PATIENT
  Age: 64 Year
  Sex: Female
  Weight: 77.1115 kg

DRUGS (5)
  1. ZYRTEC [Suspect]
     Indication: HYPERSENSITIVITY
     Dates: start: 20040101
  2. PLAVIX [Concomitant]
  3. ZOCOR [Concomitant]
  4. LISINOPRIL [Concomitant]
  5. METOPROLOL SUCCINATE [Concomitant]

REACTIONS (1)
  - MYOCARDIAL INFARCTION [None]
